FAERS Safety Report 5315393-0 (Version None)
Quarter: 2007Q2

REPORT INFORMATION
  Report Type: 
  Country: None (occurrence: None)
  Receive Date: 20070503
  Receipt Date: 20070427
  Transmission Date: 20071010
  Serious: Yes (Hospitalization, Other)
  Sender: FDA-Public Use
  Company Number: PHEH2007US04504

PATIENT
  Sex: Female

DRUGS (1)
  1. ZELNORM [Suspect]
     Indication: ILEUS
     Dosage: UNK, UNK
     Route: 048

REACTIONS (4)
  - ALOPECIA [None]
  - CHEST DISCOMFORT [None]
  - CHEST PAIN [None]
  - HEART RATE IRREGULAR [None]
